FAERS Safety Report 8605601-2 (Version None)
Quarter: 2012Q3

REPORT INFORMATION
  Report Type: 
  Country: None (occurrence: None)
  Receive Date: 20120820
  Receipt Date: 20120809
  Transmission Date: 20120928
  Serious: Yes (Other)
  Sender: FDA-Public Use
  Company Number: US-ASTRAZENECA-2011SE18714

PATIENT
  Age: 38 Year
  Sex: Female
  Weight: 90.7 kg

DRUGS (10)
  1. CELEXA [Concomitant]
  2. LAMOTRIGINE [Concomitant]
  3. CLONAZEPAM [Concomitant]
  4. FAMCICLOVIR [Concomitant]
  5. SEROQUEL XR [Suspect]
     Route: 048
     Dates: start: 20080101
  6. GABAPENTIN [Concomitant]
  7. PRILOSEC [Suspect]
     Route: 048
     Dates: start: 20050101
  8. PROMETHAZINE [Concomitant]
  9. BUPROPION HCL [Concomitant]
  10. CYCLOBENZAPRINE [Concomitant]

REACTIONS (6)
  - MALAISE [None]
  - CYSTITIS [None]
  - FUNCTIONAL GASTROINTESTINAL DISORDER [None]
  - ATTENTION DEFICIT/HYPERACTIVITY DISORDER [None]
  - BIPOLAR DISORDER [None]
  - PANIC ATTACK [None]
